FAERS Safety Report 9596421 (Version 1)
Quarter: 2013Q4

REPORT INFORMATION
  Report Type: Spontaneous
  Country: CO (occurrence: CO)
  Receive Date: 20131004
  Receipt Date: 20131004
  Transmission Date: 20140711
  Serious: Yes (Death, Hospitalization, Other)
  Sender: FDA-Public Use
  Company Number: CO-PFIZER INC-2013282079

PATIENT
  Age: 4 Year
  Sex: Male
  Weight: 25 kg

DRUGS (5)
  1. PIPERACILLIN/TAZOBACTAM [Suspect]
     Indication: SEPSIS
     Dosage: UNK
  2. LAMICTAL [Suspect]
     Indication: LENNOX-GASTAUT SYNDROME
     Dosage: 125 MG, DAILY (5MG/KG)
     Dates: start: 2011
  3. METOCLOPRAMIDE [Suspect]
     Indication: GASTRITIS
     Dosage: UNK
  4. PHENOBARBITONE [Suspect]
     Indication: LENNOX-GASTAUT SYNDROME
     Dosage: 125 MG, DAILY (5MG/KG)
     Dates: start: 2009
  5. CLOBAZAM [Suspect]
     Indication: LENNOX-GASTAUT SYNDROME
     Dosage: 32.5 MG, DAILY (1.3MG/KG)
     Route: 065

REACTIONS (4)
  - Sepsis [Fatal]
  - Lennox-Gastaut syndrome [Not Recovered/Not Resolved]
  - Condition aggravated [Not Recovered/Not Resolved]
  - Dermatitis exfoliative [Unknown]
